FAERS Safety Report 8419751-7 (Version None)
Quarter: 2012Q2

REPORT INFORMATION
  Report Type: 
  Country: None (occurrence: None)
  Receive Date: 20120607
  Receipt Date: 20120604
  Transmission Date: 20120825
  Serious: Yes (Hospitalization)
  Sender: FDA-Public Use
  Company Number: US-ACTELION-A-NJ2012-66700

PATIENT

DRUGS (3)
  1. VENTAVIS [Suspect]
     Dosage: UNK
     Route: 055
     Dates: start: 20060118
  2. COUMADIN [Concomitant]
  3. VENTAVIS [Suspect]
     Indication: PULMONARY ARTERIAL HYPERTENSION
     Dosage: UNK
     Route: 055

REACTIONS (3)
  - DECREASED APPETITE [None]
  - ASTHENIA [None]
  - GASTROINTESTINAL INFECTION [None]
